FAERS Safety Report 9549335 (Version 1)
Quarter: 2013Q3

REPORT INFORMATION
  Report Type: Spontaneous
  Country: GB (occurrence: GB)
  Receive Date: 20130924
  Receipt Date: 20130924
  Transmission Date: 20140515
  Serious: Yes (Hospitalization, Other)
  Sender: FDA-Public Use
  Company Number: GB-PFIZER INC-2013272516

PATIENT
  Age: 51 Year
  Sex: Male

DRUGS (14)
  1. DICLOFENAC [Suspect]
     Indication: GOUT
     Dosage: UNK
     Route: 048
     Dates: start: 20061026, end: 20061102
  2. COLCHICINE [Suspect]
     Indication: GOUT
     Dosage: 12 PER DAY
     Route: 048
     Dates: start: 20061026
  3. LISINOPRIL [Concomitant]
     Dosage: 20 MG, 1X/DAY
  4. INSULATARD PORCINE [Concomitant]
     Dosage: UNK
     Route: 058
  5. ASPIRIN [Concomitant]
     Dosage: 75 MG, 1X/DAY
  6. OMEPRAZOLE [Concomitant]
     Dosage: 20 MG, 1X/DAY
  7. ATENOLOL [Concomitant]
     Dosage: 50 MG, 1X/DAY
  8. BEZAFIBRATE [Concomitant]
     Dosage: 400 MG, 1X/DAY
  9. SIMVASTATIN [Concomitant]
     Dosage: 40 MG, 1X/DAY
  10. AMLODIPINE [Concomitant]
     Dosage: 5 MG, 1X/DAY
  11. FERROUS SULPHATE [Concomitant]
     Dosage: UNK
  12. ACTRAPID PORCINE [Concomitant]
     Dosage: UNK
  13. BENDROFLUMETHIAZIDE [Concomitant]
     Dosage: 2.5 MG, 1X/DAY
  14. CO-DYDRAMOL [Concomitant]
     Dosage: UNK

REACTIONS (9)
  - Drug dispensing error [Unknown]
  - Renal failure acute [Recovered/Resolved]
  - Inflammatory marker increased [Unknown]
  - Diarrhoea [Recovered/Resolved]
  - Metabolic acidosis [Recovered/Resolved]
  - Weight decreased [Unknown]
  - Dehydration [Unknown]
  - Pallor [Unknown]
  - Malaise [Unknown]
